FAERS Safety Report 6925622-5 (Version None)
Quarter: 2010Q3

REPORT INFORMATION
  Report Type: 
  Country: None (occurrence: None)
  Receive Date: 20100816
  Receipt Date: 20100806
  Transmission Date: 20110219
  Serious: Yes (Hospitalization)
  Sender: FDA-Public Use
  Company Number: ES-ABBOTT-10P-144-0659044-00

PATIENT
  Sex: Male
  Weight: 50.7 kg

DRUGS (2)
  1. KALETRA [Suspect]
     Indication: HIV INFECTION
     Route: 048
     Dates: start: 20090715
  2. KALETRA [Suspect]
     Indication: LIPOATROPHY

REACTIONS (2)
  - ESCHERICHIA URINARY TRACT INFECTION [None]
  - PYELONEPHRITIS ACUTE [None]
